FAERS Safety Report 5756929-5 (Version None)
Quarter: 2008Q2

REPORT INFORMATION
  Report Type: 
  Country: None (occurrence: None)
  Receive Date: 20080529
  Receipt Date: 20080520
  Transmission Date: 20081010
  Serious: No
  Sender: FDA-Public Use
  Company Number: 08H-163-0314318-00

PATIENT
  Age: 8 Year
  Sex: Male

DRUGS (1)
  1. MORPHINE SULFATE [Suspect]
     Indication: PAIN
     Dosage: 2 MG, ONCE, INTRAVENOUS
     Route: 042
     Dates: start: 20080519, end: 20080519

REACTIONS (2)
  - ABDOMINAL PAIN [None]
  - CHEST PAIN [None]
